FAERS Safety Report 6334720-9 (Version None)
Quarter: 2009Q3

REPORT INFORMATION
  Report Type: 
  Country: None (occurrence: None)
  Receive Date: 20090831
  Receipt Date: 20090831
  Transmission Date: 20100115
  Serious: Yes (Hospitalization, Other)
  Sender: FDA-Public Use
  Company Number: ES-PFIZER INC-2009242142

PATIENT

DRUGS (1)
  1. NORVASC [Suspect]
     Dosage: 10 MG, UNK
     Dates: start: 20090101, end: 20090101

REACTIONS (4)
  - CARDIAC FAILURE [None]
  - INTENTIONAL OVERDOSE [None]
  - RENAL FAILURE [None]
  - SUICIDE ATTEMPT [None]
